FAERS Safety Report 11886706 (Version 2)
Quarter: 2016Q1

REPORT INFORMATION
  Report Type: Spontaneous
  Country: US (occurrence: US)
  Receive Date: 20160104
  Receipt Date: 20160210
  Transmission Date: 20160526
  Serious: No
  Sender: FDA-Public Use
  Company Number: US-PFIZER INC-2015436858

PATIENT
  Age: 67 Year
  Sex: Female
  Weight: 60 kg

DRUGS (7)
  1. ADVIL [Suspect]
     Active Substance: IBUPROFEN
     Indication: INFLAMMATION
  2. ASPIRIN. [Concomitant]
     Active Substance: ASPIRIN
     Indication: PROPHYLAXIS
     Dosage: 81 MG, DAILY
  3. PROGESTERONE. [Concomitant]
     Active Substance: PROGESTERONE
     Indication: SLEEP DISORDER
     Dosage: 100 MG, DAILY
     Dates: start: 2013
  4. GABAPENTIN. [Concomitant]
     Active Substance: GABAPENTIN
     Indication: RESTLESS LEGS SYNDROME
     Dosage: 300 MG, DAILY (ONE AT NIGHT)
  5. PRAMIPEXOLE. [Concomitant]
     Active Substance: PRAMIPEXOLE
     Indication: RESTLESS LEGS SYNDROME
     Dosage: 0.25 MG, DAILY (ONE AT NIGHT)
  6. LEVOTHYROXINE. [Concomitant]
     Active Substance: LEVOTHYROXINE
     Indication: HYPOTHYROIDISM
     Dosage: 88 UG, 1X/DAY
  7. ADVIL [Suspect]
     Active Substance: IBUPROFEN
     Indication: SCIATICA
     Dosage: 400 MG, 3X/DAY
     Dates: start: 201510

REACTIONS (4)
  - Abdominal discomfort [Recovering/Resolving]
  - Anxiety [Not Recovered/Not Resolved]
  - Product use issue [Not Recovered/Not Resolved]
  - Intentional product use issue [Not Recovered/Not Resolved]

NARRATIVE: CASE EVENT DATE: 2015
